FAERS Safety Report 20738103 (Version 1)
Quarter: 2022Q2

REPORT INFORMATION
  Report Type: Spontaneous
  Country: FR (occurrence: FR)
  Receive Date: 20220422
  Receipt Date: 20220422
  Transmission Date: 20220721
  Serious: Yes (Hospitalization)
  Sender: FDA-Public Use
  Company Number: None

PATIENT
  Age: 70 Year
  Sex: Male
  Weight: 85 kg

DRUGS (3)
  1. FLUOROURACIL [Suspect]
     Active Substance: FLUOROURACIL
     Indication: Rectal adenocarcinoma
     Dosage: 800 MG,DURATION 28 DAYS
     Route: 042
     Dates: start: 20220118, end: 20220215
  2. AVASTIN [Suspect]
     Active Substance: BEVACIZUMAB
     Indication: Rectal adenocarcinoma
     Dosage: 420 MG, FROM 03/08/21 TO 09/11/21 THEN 23/11/21, THEN FROM 18/01/22 TO 15/02/22,AVASTIN 25 MG/ML CON
     Route: 042
     Dates: start: 20210803, end: 20220215
  3. HYDROCHLOROTHIAZIDE\IRBESARTAN [Concomitant]
     Active Substance: HYDROCHLOROTHIAZIDE\IRBESARTAN
     Indication: Hypertension
     Dosage: 1 DOSAGE FORMS DAILY; 1 TAB/D,COAPROVEL 300 MG/25 MG FILM-COATED TABLETS
     Route: 048
     Dates: start: 202109

REACTIONS (1)
  - Transient ischaemic attack [Recovered/Resolved]

NARRATIVE: CASE EVENT DATE: 20220224
